FAERS Safety Report 8870202 (Version 1)
Quarter: 2012Q4

REPORT INFORMATION
  Report Type: 
  Country: US (occurrence: US)
  Receive Date: 20121026
  Receipt Date: 20121026
  Transmission Date: 20130627
  Serious: No
  Sender: FDA-Public Use
  Company Number: US-AMGEN-USASP2012043799

PATIENT
  Age: 53 Year
  Sex: Female
  Weight: 51.25 kg

DRUGS (13)
  1. ENBREL [Suspect]
     Indication: PRODUCT USED FOR UNKNOWN INDICATION
     Dosage: 50 mg/ml, qwk
     Route: 058
  2. SINGULAIR [Concomitant]
     Dosage: 10 mg, UNK
  3. METHOTREXATE [Concomitant]
     Dosage: 2.5 mg, UNK
  4. METFORMIN [Concomitant]
     Dosage: 500 mg, UNK
  5. LISINOPRIL [Concomitant]
     Dosage: 40 mg, UNK
  6. LEVOTHYROXIN [Concomitant]
     Dosage: 100 mug, UNK
  7. VITAMIN D3 [Concomitant]
     Dosage: 5000 unit, UNK
  8. FISH OIL [Concomitant]
     Dosage: UNK
  9. VITAMIN B COMPLEX [Concomitant]
     Dosage: UNK
  10. MULTIVITAMIN                       /00097801/ [Concomitant]
     Dosage: UNK
  11. FOLIC ACID [Concomitant]
  12. LEVOCETIRIZINE DIHYDROCHLORIDE [Concomitant]
     Dosage: 5 mg, UNK
  13. VITAMIN C                          /00008001/ [Concomitant]
     Dosage: 100 mg, UNK

REACTIONS (5)
  - Cyst [Unknown]
  - Eye pruritus [Unknown]
  - Dry eye [Unknown]
  - Injection site erythema [Unknown]
  - Injection site inflammation [Unknown]
